FAERS Safety Report 4317637-0 (Version None)
Quarter: 2004Q1

REPORT INFORMATION
  Report Type: 
  Country: None (occurrence: None)
  Receive Date: 20040315
  Receipt Date: 20040309
  Transmission Date: 20041129
  Serious: Yes (Other)
  Sender: FDA-Public Use
  Company Number: US-GLAXOSMITHKLINE-A0501964A

PATIENT
  Age: 21 Month
  Sex: Female

DRUGS (7)
  1. AUGMENTIN [Suspect]
     Indication: SINUSITIS
     Dosage: 500MG TWICE PER DAY
     Route: 048
     Dates: start: 20040303, end: 20040306
  2. AUGMENTIN [Suspect]
     Dosage: 500MG TWICE PER DAY
     Route: 048
     Dates: start: 20040307, end: 20040309
  3. LAXATIVE [Concomitant]
  4. ZYRTEC [Concomitant]
  5. REGLAN [Concomitant]
  6. ROBINUL [Concomitant]
  7. BENADRYL [Concomitant]

REACTIONS (6)
  - BRONCHOSPASM [None]
  - CHOKING [None]
  - CYANOSIS [None]
  - EYE ROLLING [None]
  - LETHARGY [None]
  - SWELLING FACE [None]
